FAERS Safety Report 7588910-8 (Version None)
Quarter: 2011Q3

REPORT INFORMATION
  Report Type: 
  Country: None (occurrence: None)
  Receive Date: 20110705
  Receipt Date: 20110621
  Transmission Date: 20111222
  Serious: Yes (Other)
  Sender: FDA-Public Use
  Company Number: US-BAYER-2011-054132

PATIENT
  Sex: Female

DRUGS (4)
  1. NAPROXEN SODIUM [Suspect]
     Route: 048
  2. ACETAMINOPHEN [Suspect]
  3. ALEVE (CAPLET) [Suspect]
     Route: 048
  4. ADVIL LIQUI-GELS [Suspect]

REACTIONS (1)
  - UNEVALUABLE EVENT [None]
